FAERS Safety Report 15668174 (Version 1)
Quarter: 2018Q4

REPORT INFORMATION
  Report Type: Report from Study
  Country: None (occurrence: US)
  Receive Date: 20181129
  Receipt Date: 20181129
  Transmission Date: 20190205
  Serious: Yes (Death)
  Sender: FDA-Public Use
  Company Number: US-ABBVIE-18K-163-2484501-00

PATIENT
  Sex: Male

DRUGS (6)
  1. VENCLEXTA [Suspect]
     Active Substance: VENETOCLAX
     Dosage: 100MG WK3
     Route: 048
     Dates: start: 201809, end: 201809
  2. VENCLEXTA [Suspect]
     Active Substance: VENETOCLAX
     Indication: ACUTE MYELOID LEUKAEMIA
     Dosage: 20MG WK1
     Route: 048
     Dates: start: 20180828, end: 2018
  3. VENCLEXTA [Suspect]
     Active Substance: VENETOCLAX
     Dosage: 200MG WK4
     Route: 048
     Dates: start: 201809
  4. VENCLEXTA [Suspect]
     Active Substance: VENETOCLAX
     Dosage: MAINTENANCE DOSE
     Route: 048
     Dates: start: 20180920
  5. VENCLEXTA [Suspect]
     Active Substance: VENETOCLAX
     Indication: ACUTE MONOCYTIC LEUKAEMIA
     Dosage: 50MG WK2
     Route: 048
     Dates: start: 201809, end: 201809
  6. VIDAZA [Concomitant]
     Active Substance: AZACITIDINE
     Indication: PRODUCT USED FOR UNKNOWN INDICATION
     Dosage: DAILY FOR 7 DAYS
     Route: 058

REACTIONS (2)
  - Death [Fatal]
  - Intentional product use issue [Unknown]

NARRATIVE: CASE EVENT DATE: 2018
